FAERS Safety Report 9460785 (Version 1)
Quarter: 2013Q3

REPORT INFORMATION
  Report Type: Spontaneous
  Country: CH (occurrence: CH)
  Receive Date: 20130815
  Receipt Date: 20130815
  Transmission Date: 20140515
  Serious: Yes (Hospitalization)
  Sender: FDA-Public Use
  Company Number: CH-GLAXOSMITHKLINE-B0915178A

PATIENT
  Age: 42 Year
  Sex: Male

DRUGS (5)
  1. ZOVIRAX [Suspect]
     Indication: HERPES ZOSTER
     Dosage: 900MG THREE TIMES PER DAY
     Route: 030
     Dates: start: 20130424
  2. BRUFEN [Suspect]
     Indication: PAIN
     Dosage: 400MG PER DAY
     Route: 048
     Dates: start: 20130426, end: 20130426
  3. BELOC [Concomitant]
     Dosage: 100MG PER DAY
     Route: 048
  4. CRESTOR [Concomitant]
     Dosage: 10MG PER DAY
     Route: 048
  5. DEPAKINE [Concomitant]
     Dosage: 500MG PER DAY
     Route: 048

REACTIONS (2)
  - Renal failure acute [Recovering/Resolving]
  - Drug interaction [Unknown]
